FAERS Safety Report 24142746 (Version 1)
Quarter: 2024Q3

REPORT INFORMATION
  Report Type: Report from Study
  Country: US (occurrence: None)
  Receive Date: 20240726
  Receipt Date: 20240726
  Transmission Date: 20241017
  Serious: Yes (Hospitalization)
  Sender: ASTRAZENECA
  Company Number: 2024A164556

PATIENT
  Sex: Female

DRUGS (1)
  1. FARXIGA [Suspect]
     Active Substance: DAPAGLIFLOZIN PROPANEDIOL
     Dosage: UNKNOWN
     Route: 048

REACTIONS (6)
  - Sepsis [Unknown]
  - Renal impairment [Unknown]
  - Renal failure [Unknown]
  - Clostridium difficile infection [Unknown]
  - Megacolon [Unknown]
  - Electrolyte imbalance [Unknown]
